FAERS Safety Report 7940858-2 (Version None)
Quarter: 2011Q4

REPORT INFORMATION
  Report Type: 
  Country: None (occurrence: None)
  Receive Date: 20111122
  Receipt Date: 20111116
  Transmission Date: 20120403
  Serious: Yes (Other)
  Sender: FDA-Public Use
  Company Number: AUR-APL-2011-05598

PATIENT
  Age: 80 Year
  Sex: Female

DRUGS (8)
  1. ENALAPRIL MALEATE [Concomitant]
  2. ZANTAC [Concomitant]
  3. PREVACID [Concomitant]
  4. AMLODIPINE [Concomitant]
  5. LEVEMIR [Concomitant]
  6. CIPROFLOXACIN [Suspect]
     Indication: URINARY TRACT INFECTION
     Dosage: 500 MG (250 MG, 2 IN 1 D), ORAL
     Route: 048
     Dates: start: 20111017
  7. METOPROLOL TARTRATE [Concomitant]
  8. PRAVASTATIN [Concomitant]

REACTIONS (4)
  - SIALOADENITIS [None]
  - HERPES ZOSTER [None]
  - ORAL INFECTION [None]
  - PRODUCT QUALITY ISSUE [None]
